FAERS Safety Report 5703028-4 (Version None)
Quarter: 2008Q2

REPORT INFORMATION
  Report Type: 
  Country: None (occurrence: None)
  Receive Date: 20080411
  Receipt Date: 20080408
  Transmission Date: 20081010
  Serious: Yes (Other)
  Sender: FDA-Public Use
  Company Number: ES-BRISTOL-MYERS SQUIBB COMPANY-14146088

PATIENT
  Age: 68 Year
  Sex: Male

DRUGS (5)
  1. TAXOL [Suspect]
     Indication: RENAL CELL CARCINOMA
     Dosage: 04 FEBRUARY 2008 TO 1 APRIL 2008.
     Route: 042
     Dates: start: 20080204, end: 20080401
  2. DEXAMETHASONE [Concomitant]
     Indication: PREMEDICATION
     Route: 042
     Dates: start: 20080204, end: 20080401
  3. POLARAMINE [Concomitant]
     Indication: PREMEDICATION
     Route: 042
     Dates: start: 20080204, end: 20080401
  4. YATROX [Concomitant]
     Indication: PREMEDICATION
     Route: 042
     Dates: start: 20080204, end: 20080401
  5. RANITIDINE [Concomitant]
     Dates: start: 20080204, end: 20080401

REACTIONS (2)
  - CAUSTIC INJURY [None]
  - PRURITUS [None]
